FAERS Safety Report 5343717-7 (Version None)
Quarter: 2007Q2

REPORT INFORMATION
  Report Type: 
  Country: None (occurrence: None)
  Receive Date: 20070531
  Receipt Date: 20070531
  Transmission Date: 20071010
  Serious: Yes (Other)
  Sender: FDA-Public Use
  Company Number: None

PATIENT
  Sex: Female

DRUGS (2)
  1. OXYCODONE HCL [Suspect]
     Indication: COLON CANCER METASTATIC
     Dosage: 2 80MG 2 80MG Q12?
  2. OXYCODONE HCL [Suspect]
     Indication: RADICULOPATHY
     Dosage: 2 80MG 2 80MG Q12?

REACTIONS (3)
  - DRUG WITHDRAWAL SYNDROME [None]
  - PRURITUS [None]
  - VOMITING [None]
